FAERS Safety Report 9668128 (Version 2)
Quarter: 2013Q4

REPORT INFORMATION
  Report Type: Spontaneous
  Country: IT (occurrence: IT)
  Receive Date: 20131104
  Receipt Date: 20131111
  Transmission Date: 20140711
  Serious: No
  Sender: FDA-Public Use
  Company Number: PHHY2013IT122356

PATIENT
  Age: 1 Year
  Sex: Male

DRUGS (1)
  1. AMOXICILLIN SANDOZ [Suspect]
     Dosage: 290 MG/KG
     Route: 048

REACTIONS (9)
  - Blood creatine phosphokinase increased [Unknown]
  - Amylase increased [Unknown]
  - Platelet count increased [Unknown]
  - Amylase decreased [Unknown]
  - Blood lactate dehydrogenase increased [Unknown]
  - Incorrect dose administered [Unknown]
  - Medication error [Recovered/Resolved]
  - Aspartate aminotransferase increased [Unknown]
  - Accidental overdose [Unknown]
